FAERS Safety Report 4937416-0 (Version None)
Quarter: 2006Q1

REPORT INFORMATION
  Report Type: 
  Country: None (occurrence: None)
  Receive Date: 20060309
  Receipt Date: 20060301
  Transmission Date: 20060701
  Serious: Yes (Other)
  Sender: FDA-Public Use
  Company Number: PHBS2006BR03453

PATIENT
  Age: 39 Year
  Sex: Female
  Weight: 70 kg

DRUGS (3)
  1. TRILEPTAL [Suspect]
     Indication: VASCULAR ANOMALY
     Dosage: 600 MG, TID
     Route: 048
  2. TRILEPTAL [Suspect]
     Dosage: 300 MG, UNK
     Route: 048
  3. CYTARABINE [Concomitant]
     Indication: DEPRESSION
     Dosage: UNK, QD

REACTIONS (6)
  - ANXIETY [None]
  - BALANCE DISORDER [None]
  - INCREASED APPETITE [None]
  - SOMNOLENCE [None]
  - VISION BLURRED [None]
  - WEIGHT INCREASED [None]
